FAERS Safety Report 6172172-2 (Version None)
Quarter: 2009Q2

REPORT INFORMATION
  Report Type: 
  Country: None (occurrence: None)
  Receive Date: 20090429
  Receipt Date: 20081106
  Transmission Date: 20091009
  Serious: No
  Sender: FDA-Public Use
  Company Number: A0755857A

PATIENT

DRUGS (3)
  1. ZOFRAN [Suspect]
     Indication: THERAPEUTIC PROCEDURE
     Route: 065
  2. DOCETAXEL [Suspect]
     Route: 065
  3. DECADRON [Suspect]

REACTIONS (1)
  - HYPERSENSITIVITY [None]
